FAERS Safety Report 10427656 (Version 2)
Quarter: 2014Q3

REPORT INFORMATION
  Report Type: Report from Study
  Country: CN (occurrence: CN)
  Receive Date: 20140903
  Receipt Date: 20140903
  Transmission Date: 20150326
  Serious: Yes (Hospitalization)
  Sender: FDA-Public Use
  Company Number: PHHO2013CN015444

PATIENT
  Age: 58 Year
  Sex: Female
  Weight: 80.9 kg

DRUGS (6)
  1. BLINDED LCZ696 [Suspect]
     Active Substance: INVESTIGATIONAL PRODUCT
     Indication: ESSENTIAL HYPERTENSION
     Dosage: DOUBLE BLINDED
     Route: 048
     Dates: start: 20131120, end: 20131124
  2. BLINDED NO TREATMENT RECEIVED [Suspect]
     Active Substance: UNSPECIFIED INGREDIENT
     Indication: ESSENTIAL HYPERTENSION
     Dosage: DOUBLE BLINDED
     Route: 048
     Dates: start: 20131120, end: 20131124
  3. LEVAMLODIPINE BESILATE [Concomitant]
     Indication: HYPERTENSION
     Dosage: 1 DF, QD
     Dates: end: 20131031
  4. PROTAMINE ZINC ISZILIN [Concomitant]
     Indication: TYPE 2 DIABETES MELLITUS
     Dosage: 16U IN THE MORNING AND 12U AT NIGHT
  5. BLINDED OLMESARTAN [Suspect]
     Active Substance: OLMESARTAN
     Indication: ESSENTIAL HYPERTENSION
     Dosage: DOUBLE BLINDED
     Route: 048
     Dates: start: 20131120, end: 20131124
  6. LEVAMLODIPINE BESILATE [Concomitant]
     Dosage: 1 DF, QD
     Dates: start: 20131125

REACTIONS (1)
  - Cholelithiasis [Recovered/Resolved]

NARRATIVE: CASE EVENT DATE: 20131125
